FAERS Safety Report 6543240-8 (Version None)
Quarter: 2010Q1

REPORT INFORMATION
  Report Type: 
  Country: None (occurrence: None)
  Receive Date: 20100120
  Receipt Date: 20100115
  Transmission Date: 20100710
  Serious: Yes (Death)
  Sender: FDA-Public Use
  Company Number: FR-CELGENEUS-056-20484-09100121

PATIENT
  Sex: Male

DRUGS (4)
  1. TINZAPARIN [Suspect]
     Indication: DRUG USE FOR UNKNOWN INDICATION
     Dosage: 173IU/KG/24H
     Route: 062
  2. TINZAPARIN [Suspect]
     Dosage: MORE THAN 15IU/KG/24H
     Route: 062
  3. TINZAPARIN [Suspect]
     Dosage: HIGHER THAN } 190IU/KG/24H
     Route: 062
  4. TINZAPARIN [Suspect]
     Dosage: LOWER THAN 160IU/KG/24H
     Route: 058

REACTIONS (1)
  - PNEUMONIA ASPIRATION [None]
